FAERS Safety Report 10332431 (Version 1)
Quarter: 2014Q3

REPORT INFORMATION
  Report Type: Spontaneous
  Country: US (occurrence: US)
  Receive Date: 20140722
  Receipt Date: 20140722
  Transmission Date: 20150326
  Serious: Yes (Other)
  Sender: FDA-Public Use
  Company Number: US-BRISTOL-MYERS SQUIBB COMPANY-21207048

PATIENT
  Age: 48 Year
  Sex: Female

DRUGS (2)
  1. TYSABRI [Concomitant]
     Active Substance: NATALIZUMAB
  2. STADOL [Suspect]
     Active Substance: BUTORPHANOL TARTRATE
     Dosage: FORMULATION:SOLUTION

REACTIONS (1)
  - Anaphylactic reaction [Unknown]
